FAERS Safety Report 14868937 (Version 3)
Quarter: 2018Q4

REPORT INFORMATION
  Report Type: Report from Study
  Country: AT (occurrence: AT)
  Receive Date: 20180509
  Receipt Date: 20181204
  Transmission Date: 20190204
  Serious: Yes (Hospitalization)
  Sender: FDA-Public Use
  Company Number: AT-TEVA-2018-AT-890198

PATIENT
  Age: 36 Year
  Sex: Female

DRUGS (35)
  1. CEOLAT [Concomitant]
     Route: 065
     Dates: start: 20161112, end: 20170215
  2. GLADEM [Concomitant]
     Active Substance: SERTRALINE HYDROCHLORIDE
     Route: 065
     Dates: end: 20171015
  3. CONCOR COR [Concomitant]
     Active Substance: BISOPROLOL FUMARATE
     Route: 065
     Dates: start: 20161117, end: 20170226
  4. VITAMINS WITH MINERALS [Concomitant]
     Active Substance: MINERALS\VITAMINS
     Route: 065
     Dates: start: 20161112
  5. HALDOL [Concomitant]
     Active Substance: HALOPERIDOL
     Route: 065
     Dates: end: 20170215
  6. LASIX [Concomitant]
     Active Substance: FUROSEMIDE
     Route: 065
     Dates: start: 20161114, end: 20161115
  7. DOCETAXEL. [Suspect]
     Active Substance: DOCETAXEL
     Indication: BREAST CANCER
     Dosage: DATE OF MOST RECENT DOSE: 11/NOV/2016
     Route: 042
     Dates: start: 20161004, end: 20161005
  8. CYCLOPHOSPHAMIDE. [Suspect]
     Active Substance: CYCLOPHOSPHAMIDE
     Indication: BREAST CANCER
     Route: 042
     Dates: start: 20161005, end: 20161005
  9. XARELTO [Concomitant]
     Active Substance: RIVAROXABAN
     Route: 065
     Dates: start: 20161026, end: 20161215
  10. PASPERTIN (AUSTRIA) [Concomitant]
     Route: 065
     Dates: end: 20161113
  11. OPTIFIBRE [Concomitant]
     Route: 065
     Dates: start: 20161102, end: 20161115
  12. DOCETAXEL. [Suspect]
     Active Substance: DOCETAXEL
     Dosage: DATE OF MOST RECENT DOSE: 11/NOV/2016, 01/DEC/2016
     Route: 042
     Dates: start: 20161020
  13. PERTUZUMAB. [Suspect]
     Active Substance: PERTUZUMAB
     Indication: BREAST CANCER
     Route: 042
     Dates: start: 20161020, end: 20161020
  14. CYCLOPHOSPHAMIDE. [Suspect]
     Active Substance: CYCLOPHOSPHAMIDE
     Indication: HER-2 POSITIVE BREAST CANCER
  15. DUROGESIC [Concomitant]
     Active Substance: FENTANYL
     Route: 065
     Dates: end: 20170615
  16. PERTUZUMAB. [Suspect]
     Active Substance: PERTUZUMAB
     Indication: HER-2 POSITIVE BREAST CANCER
  17. TRASTUZUMAB. [Suspect]
     Active Substance: TRASTUZUMAB
     Indication: HER-2 POSITIVE BREAST CANCER
  18. ELOMEL [Concomitant]
     Route: 065
     Dates: start: 20161208, end: 20161212
  19. PANTOLOC [Concomitant]
     Active Substance: PANTOPRAZOLE SODIUM
     Route: 065
     Dates: start: 20161031, end: 20161123
  20. SUCRALAN [Concomitant]
     Route: 065
     Dates: start: 20161215
  21. ZOFRAN [Concomitant]
     Active Substance: ONDANSETRON HYDROCHLORIDE
     Route: 065
     Dates: start: 20161123, end: 20170204
  22. TRASTUZUMAB. [Suspect]
     Active Substance: TRASTUZUMAB
     Indication: BREAST CANCER
     Route: 042
     Dates: start: 20161020, end: 20161020
  23. RAMIPRIL. [Concomitant]
     Active Substance: RAMIPRIL
     Route: 065
     Dates: start: 20161222, end: 20170226
  24. LASIX [Concomitant]
     Active Substance: FUROSEMIDE
     Route: 065
     Dates: start: 20161112, end: 20161114
  25. FORTECORTIN [Concomitant]
     Active Substance: DEXAMETHASONE
     Route: 065
     Dates: start: 20161202, end: 20161203
  26. MOVICOL [Concomitant]
     Active Substance: POLYETHYLENE GLYCOL 3350\POTASSIUM CHLORIDE\SODIUM BICARBONATE\SODIUM CHLORIDE
     Route: 065
     Dates: end: 20170615
  27. XGEVA [Concomitant]
     Active Substance: DENOSUMAB
     Route: 065
     Dates: start: 20161201
  28. ELOMEL [Concomitant]
     Indication: FEBRILE NEUTROPENIA
     Route: 065
     Dates: end: 20161110
  29. HALCION [Concomitant]
     Active Substance: TRIAZOLAM
     Route: 065
     Dates: start: 20160615, end: 20170215
  30. KCL-RETARD [Concomitant]
     Active Substance: POTASSIUM CHLORIDE
     Route: 065
     Dates: start: 20161117, end: 20170215
  31. HYDAL [Concomitant]
     Active Substance: HYDROMORPHONE HYDROCHLORIDE
     Route: 065
     Dates: end: 20170615
  32. RAMIPRIL. [Concomitant]
     Active Substance: RAMIPRIL
     Route: 065
     Dates: start: 20161112, end: 20161221
  33. EPIRUBICIN [Suspect]
     Active Substance: EPIRUBICIN
     Indication: BREAST CANCER
     Dosage: DATE OF MOST RECENT DOSE: 05/OCT/2016
     Route: 042
     Dates: start: 20161005, end: 20161005
  34. XANOR [Concomitant]
     Active Substance: ALPRAZOLAM
     Route: 065
     Dates: end: 20161117
  35. ARANESP [Concomitant]
     Active Substance: DARBEPOETIN ALFA
     Route: 065
     Dates: start: 20161201, end: 20170115

REACTIONS (3)
  - Febrile neutropenia [Recovered/Resolved]
  - Left ventricular dysfunction [Recovered/Resolved]
  - Pharyngitis [Recovered/Resolved]

NARRATIVE: CASE EVENT DATE: 20161208
